FAERS Safety Report 9670318 (Version 2)
Quarter: 2013Q4

REPORT INFORMATION
  Report Type: Spontaneous
  Country: JP (occurrence: None)
  Receive Date: 20131025
  Receipt Date: 20131118
  Transmission Date: 20140711
  Serious: Yes (Other)
  Sender: FDA-Public Use
  Company Number: 2013038525

PATIENT
  Age: 1 Day
  Sex: 0

DRUGS (2)
  1. SANGLOPOR [Suspect]
     Route: 064
     Dates: start: 20120410, end: 20120414
  2. PREDNISOLONE (PREDNISOLONE) [Concomitant]

REACTIONS (4)
  - Thrombocytopenia neonatal [None]
  - Maternal drugs affecting foetus [None]
  - Platelet count decreased [None]
  - Maternal exposure during pregnancy [None]
